FAERS Safety Report 24041601 (Version 2)
Quarter: 2024Q3

REPORT INFORMATION
  Report Type: Report from Study
  Country: CA (occurrence: CA)
  Receive Date: 20240702
  Receipt Date: 20240816
  Transmission Date: 20241017
  Serious: Yes (Other)
  Sender: JOHNSON AND JOHNSON
  Company Number: CA-JNJFOC-20240546032

PATIENT
  Age: 64 Year
  Sex: Female
  Weight: 71 kg

DRUGS (1)
  1. REMICADE [Suspect]
     Active Substance: INFLIXIMAB
     Indication: Crohn^s disease
     Dosage: EXPIRY DATE: 30/NOV/2026
     Route: 041

REACTIONS (8)
  - Respiratory tract infection fungal [Not Recovered/Not Resolved]
  - Choking [Unknown]
  - Benign neoplasm [Recovering/Resolving]
  - Nephrolithiasis [Unknown]
  - Endometrial thickening [Unknown]
  - Crohn^s disease [Not Recovered/Not Resolved]
  - Bronchitis [Recovered/Resolved]
  - Fatigue [Not Recovered/Not Resolved]

NARRATIVE: CASE EVENT DATE: 20240206
